FAERS Safety Report 8455032-3 (Version None)
Quarter: 2012Q2

REPORT INFORMATION
  Report Type: 
  Country: None (occurrence: None)
  Receive Date: 20120614
  Receipt Date: 20120606
  Transmission Date: 20120825
  Serious: Yes (Other)
  Sender: FDA-Public Use
  Company Number: WAES 1206USA01708

PATIENT
  Age: 18 Year
  Sex: Female

DRUGS (2)
  1. PRINIVIL [Suspect]
     Indication: PRODUCT USED FOR UNKNOWN INDICATION
     Dosage: /PO
  2. AMLODIPINE [Suspect]
     Indication: PRODUCT USED FOR UNKNOWN INDICATION

REACTIONS (4)
  - TOXICITY TO VARIOUS AGENTS [None]
  - ACUTE LUNG INJURY [None]
  - CARDIOVASCULAR DISORDER [None]
  - SHOCK [None]
